FAERS Safety Report 23040798 (Version 1)
Quarter: 2023Q4

REPORT INFORMATION
  Report Type: Spontaneous
  Country: US (occurrence: US)
  Receive Date: 20231006
  Receipt Date: 20231006
  Transmission Date: 20240110
  Serious: Yes (Other)
  Sender: FDA-Public Use
  Company Number: US-COOPERSURGICAL, INC.-US-2023CPS003159

PATIENT
  Sex: Female

DRUGS (1)
  1. PARAGARD T 380A [Suspect]
     Active Substance: COPPER
     Indication: Product used for unknown indication
     Dosage: UNK
     Route: 015
     Dates: start: 20110926

REACTIONS (10)
  - Ascites [Unknown]
  - Mental disorder [Unknown]
  - Pain [Unknown]
  - Fatigue [Unknown]
  - Weight increased [Unknown]
  - Hypertension [Unknown]
  - Menstruation irregular [Unknown]
  - Dyspareunia [Unknown]
  - Impaired work ability [Unknown]
  - Device use issue [Unknown]

NARRATIVE: CASE EVENT DATE: 20210927
